FAERS Safety Report 6212908-5 (Version None)
Quarter: 2009Q2

REPORT INFORMATION
  Report Type: 
  Country: None (occurrence: None)
  Receive Date: 20090603
  Receipt Date: 20090528
  Transmission Date: 20091009
  Serious: Yes (Life-Threatening, Hospitalization, Other)
  Sender: FDA-Public Use
  Company Number: IT-BAXTER-2009BH009210

PATIENT
  Age: 49 Year
  Sex: Male

DRUGS (4)
  1. CYCLOPHOSPHAMIDE [Suspect]
     Indication: BONE MARROW CONDITIONING REGIMEN
     Route: 065
  2. SPRYCEL [Suspect]
     Indication: ACUTE LYMPHOCYTIC LEUKAEMIA
     Route: 048
     Dates: start: 20090223, end: 20090414
  3. SPRYCEL [Suspect]
     Indication: CHROMOSOME ANALYSIS ABNORMAL
     Route: 048
     Dates: start: 20090223, end: 20090414
  4. RADIATION THERAPY [Suspect]
     Indication: BONE MARROW CONDITIONING REGIMEN
     Route: 065

REACTIONS (4)
  - DERMATITIS EXFOLIATIVE [None]
  - GASTROINTESTINAL INFLAMMATION [None]
  - HEPATOTOXICITY [None]
  - MULTI-ORGAN FAILURE [None]
